FAERS Safety Report 5738243-7 (Version None)
Quarter: 2008Q2

REPORT INFORMATION
  Report Type: 
  Country: None (occurrence: None)
  Receive Date: 20080514
  Receipt Date: 20080509
  Transmission Date: 20081010
  Serious: Yes (Hospitalization)
  Sender: FDA-Public Use
  Company Number: GB-BOEHRINGER INGELHEIM GMBH, GERMANY-2008-UK-01154UK

PATIENT
  Age: 55 Year
  Sex: Male

DRUGS (1)
  1. VIRAMUNE [Suspect]

REACTIONS (4)
  - ANXIETY [None]
  - COGNITIVE DISORDER [None]
  - PROGRESSIVE MULTIFOCAL LEUKOENCEPHALOPATHY [None]
  - SPEECH DISORDER [None]
